FAERS Safety Report 5975194-7 (Version None)
Quarter: 2008Q4

REPORT INFORMATION
  Report Type: 
  Country: None (occurrence: None)
  Receive Date: 20081202
  Receipt Date: 20081010
  Transmission Date: 20090506
  Serious: No
  Sender: FDA-Public Use
  Company Number: US-ABBOTT-08P-163-0481317-00

PATIENT
  Sex: Female
  Weight: 63.56 kg

DRUGS (5)
  1. LUPRON DEPOT [Suspect]
     Indication: ENDOMETRIOSIS
     Route: 030
     Dates: start: 20080805
  2. ADD-BACK THERAPY [Concomitant]
     Indication: DRUG USE FOR UNKNOWN INDICATION
  3. MEDROXYPROGESTERONE [Concomitant]
     Indication: HAEMORRHAGE
  4. MEDROXYPROGESTERONE [Concomitant]
     Indication: THROMBOSIS
  5. IBUPROFEN [Concomitant]
     Indication: PAIN

REACTIONS (4)
  - DRUG INEFFECTIVE [None]
  - PAIN [None]
  - THROMBOSIS [None]
  - VAGINAL HAEMORRHAGE [None]
